FAERS Safety Report 8259220-0 (Version None)
Quarter: 2012Q2

REPORT INFORMATION
  Report Type: 
  Country: None (occurrence: None)
  Receive Date: 20120404
  Receipt Date: 20120327
  Transmission Date: 20120825
  Serious: Yes (Disabling)
  Sender: FDA-Public Use
  Company Number: FR-ASTRAZENECA-2012SE21081

PATIENT
  Age: 21488 Day
  Sex: Female

DRUGS (8)
  1. QUETIAPINE FUMARATE [Suspect]
     Route: 048
     Dates: start: 20120327
  2. TRANXENE [Concomitant]
     Route: 048
  3. DAFLON [Concomitant]
     Route: 048
  4. ASPIRIN [Concomitant]
     Route: 048
  5. NEBIVOLOL HCL [Concomitant]
     Route: 048
  6. AMLODIPINE BESYLATE AND OLMESARTAN MEDOXOMIL [Concomitant]
     Route: 048
  7. QUETIAPINE FUMARATE [Suspect]
     Route: 048
     Dates: start: 20120324
  8. QUETIAPINE FUMARATE [Suspect]
     Indication: BIPOLAR DISORDER
     Dosage: 50 MG DAILY, DOSE PROGRESSIVELY INCREASED
     Route: 048
     Dates: start: 20120315

REACTIONS (2)
  - DYSPHEMIA [None]
  - DRY MOUTH [None]
